FAERS Safety Report 4922241-7 (Version None)
Quarter: 2006Q1

REPORT INFORMATION
  Report Type: 
  Country: None (occurrence: None)
  Receive Date: 20060224
  Receipt Date: 20030814
  Transmission Date: 20060701
  Serious: Yes (Death, Hospitalization, Other)
  Sender: FDA-Public Use
  Company Number: US-MERCK-0308USA01616

PATIENT
  Age: 57 Year
  Sex: Male
  Weight: 80 kg

DRUGS (20)
  1. VIOXX [Suspect]
     Indication: PAIN
     Route: 048
  2. VIOXX [Suspect]
     Route: 048
     Dates: end: 20010606
  3. VIOXX [Suspect]
     Route: 048
     Dates: start: 20000101
  4. VIOXX [Suspect]
     Route: 048
     Dates: start: 20010101, end: 20020601
  5. VIOXX [Suspect]
     Route: 048
  6. VIOXX [Suspect]
     Indication: ARTHRALGIA
     Route: 048
  7. VIOXX [Suspect]
     Route: 048
     Dates: end: 20010606
  8. VIOXX [Suspect]
     Route: 048
     Dates: start: 20000101
  9. VIOXX [Suspect]
     Route: 048
     Dates: start: 20010101, end: 20020601
  10. VIOXX [Suspect]
     Route: 048
  11. COLCHICINE [Concomitant]
     Route: 065
  12. ULTRAM [Concomitant]
     Indication: PAIN
     Route: 065
     Dates: end: 20010606
  13. BACTROBAN [Concomitant]
     Route: 065
  14. KENALOG [Concomitant]
     Route: 051
     Dates: start: 20020122
  15. INDOCIN [Concomitant]
     Indication: GOUT
     Route: 048
  16. PREDNISONE [Concomitant]
     Indication: GOUT
     Route: 048
  17. ALLOPURINOL [Concomitant]
     Indication: GOUT
     Route: 065
  18. SERZONE [Concomitant]
     Route: 065
  19. CELEXA [Concomitant]
     Route: 065
     Dates: start: 20001030
  20. TRAZODONE HYDROCHLORIDE [Concomitant]
     Route: 065
     Dates: start: 20010216, end: 20010606

REACTIONS (10)
  - BURSITIS [None]
  - CORONARY ARTERY THROMBOSIS [None]
  - DEPRESSION [None]
  - DERMATITIS CONTACT [None]
  - GOUT [None]
  - HEPATIC CYST [None]
  - HYPERTENSIVE CARDIOMYOPATHY [None]
  - JOINT SWELLING [None]
  - MYOCARDIAL INFARCTION [None]
  - SLEEP DISORDER [None]
